FAERS Safety Report 22173670 (Version 1)
Quarter: 2023Q2

REPORT INFORMATION
  Report Type: Spontaneous
  Country: US (occurrence: US)
  Receive Date: 20230404
  Receipt Date: 20230404
  Transmission Date: 20230721
  Serious: No
  Sender: FDA-Public Use
  Company Number: US-AMYLYX PHARMACEUTICALS, INC-AMX-002049

PATIENT
  Sex: Female

DRUGS (4)
  1. RELYVRIO [Suspect]
     Active Substance: SODIUM PHENYLBUTYRATE\TAURURSODIOL
     Indication: Amyotrophic lateral sclerosis
     Dosage: 1 SACHET ONCE DAILY FOR 3 WEEKS, THEN 1 SACHET TWICE DAILY
     Route: 048
  2. RILUZOLE [Suspect]
     Active Substance: RILUZOLE
     Indication: Amyotrophic lateral sclerosis
     Dosage: UNK
     Route: 048
  3. RILUZOLE [Suspect]
     Active Substance: RILUZOLE
     Dosage: UNK
  4. RADICAVA [Suspect]
     Active Substance: EDARAVONE
     Indication: Amyotrophic lateral sclerosis
     Dosage: UNK

REACTIONS (4)
  - Muscular weakness [Unknown]
  - Muscle twitching [Unknown]
  - Grip strength decreased [Unknown]
  - Limb discomfort [Unknown]
